FAERS Safety Report 7938326-7 (Version None)
Quarter: 2011Q4

REPORT INFORMATION
  Report Type: 
  Country: None (occurrence: None)
  Receive Date: 20111123
  Receipt Date: 20111114
  Transmission Date: 20120403
  Serious: Yes (Hospitalization, Other)
  Sender: FDA-Public Use
  Company Number: CA-ASTRAZENECA-2011SE68816

PATIENT
  Age: 61 Year
  Sex: Female
  Weight: 74.4 kg

DRUGS (2)
  1. SYMBICORT [Suspect]
     Dosage: 200 UG TWO PUFFS EVERY TWO DAYS
     Route: 055
  2. SYMBICORT [Suspect]
     Dosage: 500 UG THREE PUFFS DAILY
     Route: 055

REACTIONS (5)
  - COUGH [None]
  - DRUG HYPERSENSITIVITY [None]
  - RASH [None]
  - PNEUMONIA [None]
  - INCREASED UPPER AIRWAY SECRETION [None]
